FAERS Safety Report 19353371 (Version 1)
Quarter: 2021Q2

REPORT INFORMATION
  Report Type: Spontaneous
  Country: GB (occurrence: GB)
  Receive Date: 20210531
  Receipt Date: 20210531
  Transmission Date: 20210717
  Serious: Yes (Other)
  Sender: FDA-Public Use
  Company Number: GB-TEVA-2021-GB-1916321

PATIENT
  Age: 29 Year
  Sex: Female
  Weight: 65 kg

DRUGS (1)
  1. FLUCONAZOLE. [Suspect]
     Active Substance: FLUCONAZOLE
     Indication: VULVOVAGINAL CANDIDIASIS
     Dosage: 150 MG
     Route: 048
     Dates: start: 20210514, end: 20210514

REACTIONS (4)
  - Contusion [Not Recovered/Not Resolved]
  - Menstruation delayed [Recovered/Resolved]
  - Dermatitis allergic [Not Recovered/Not Resolved]
  - Pruritus [Not Recovered/Not Resolved]

NARRATIVE: CASE EVENT DATE: 20210514
